FAERS Safety Report 10071293 (Version 2)
Quarter: 2014Q2

REPORT INFORMATION
  Report Type: Spontaneous
  Country: US (occurrence: US)
  Receive Date: 20140410
  Receipt Date: 20140425
  Transmission Date: 20141212
  Serious: No
  Sender: FDA-Public Use
  Company Number: US-JHP PHARMACEUTICALS, LLC-JHP201400149

PATIENT
  Sex: 0

DRUGS (1)
  1. KETALAR [Suspect]
     Indication: NEURALGIA

REACTIONS (2)
  - No adverse event [Not Recovered/Not Resolved]
  - Off label use [None]
